APPROVED DRUG PRODUCT: ORLADEYO
Active Ingredient: BEROTRALSTAT DIHYDROCHLORIDE
Strength: EQ 96MG BASE/PACKET
Dosage Form/Route: PELLETS;ORAL
Application: N219776 | Product #002
Applicant: BIOCRYST PHARMACEUTICALS INC
Approved: Dec 11, 2025 | RLD: Yes | RS: No | Type: RX

EXCLUSIVITY:
Code: NP | Date: Dec 11, 2028
Code: PED | Date: Jun 11, 2029